FAERS Safety Report 4333940-2 (Version None)
Quarter: 2004Q2

REPORT INFORMATION
  Report Type: 
  Country: None (occurrence: None)
  Receive Date: 20040406
  Receipt Date: 20040406
  Transmission Date: 20050107
  Serious: Yes (Hospitalization)
  Sender: FDA-Public Use
  Company Number: None

PATIENT
  Age: 15 Year
  Sex: Female
  Weight: 76 kg

DRUGS (1)
  1. METHOTREXATE [Suspect]
     Indication: BONE SARCOMA
     Dosage: 23.5 GM X 1 IV
     Route: 042
     Dates: start: 20040322, end: 20040322

REACTIONS (3)
  - CAUSTIC INJURY [None]
  - DRUG CLEARANCE DECREASED [None]
  - VAGINAL DISORDER [None]
